FAERS Safety Report 7083936-5 (Version None)
Quarter: 2010Q4

REPORT INFORMATION
  Report Type: 
  Country: None (occurrence: None)
  Receive Date: 20101104
  Receipt Date: 20100224
  Transmission Date: 20110411
  Serious: No
  Sender: FDA-Public Use
  Company Number: US-ABBOTT-10P-163-0629694-00

PATIENT
  Sex: Male
  Weight: 77.18 kg

DRUGS (4)
  1. KALETRA [Suspect]
     Indication: HIV INFECTION
     Dosage: TWICE DAILY
     Dates: start: 20030101
  2. DIVALPROEX SODIUM [Interacting]
     Indication: BIPOLAR DISORDER
  3. ASMANEX TWISTHALER [Interacting]
     Indication: ASTHMA
     Dates: start: 20091201, end: 20100201
  4. FORADIL [Interacting]
     Indication: ASTHMA
     Dates: start: 20100201, end: 20100201

REACTIONS (6)
  - ABNORMAL BEHAVIOUR [None]
  - DRUG INTERACTION [None]
  - DRUG LEVEL DECREASED [None]
  - GAIT DISTURBANCE [None]
  - NERVOUSNESS [None]
  - TREMOR [None]
